FAERS Safety Report 13389138 (Version 1)
Quarter: 2017Q1

REPORT INFORMATION
  Report Type: Spontaneous
  Country: DE (occurrence: DE)
  Receive Date: 20170330
  Receipt Date: 20170330
  Transmission Date: 20170429
  Serious: Yes (Hospitalization)
  Sender: FDA-Public Use
  Company Number: DE-ELI_LILLY_AND_COMPANY-DE201703007703

PATIENT
  Age: 87 Year
  Sex: Female

DRUGS (5)
  1. NIFEHEXAL [Concomitant]
  2. HUMINSULIN 30% REGULAR, 70% NPH [Suspect]
     Active Substance: INSULIN HUMAN
     Indication: DIABETES MELLITUS
     Dosage: UNK, UNKNOWN
     Route: 058
  3. KALINOR                            /00031402/ [Concomitant]
     Active Substance: POTASSIUM CITRATE
  4. HUMINSULIN REGULAR [Suspect]
     Active Substance: INSULIN HUMAN
     Indication: DIABETES MELLITUS
     Dosage: UNK, UNKNOWN
     Route: 058
  5. METOPROLOL                         /00376902/ [Concomitant]
     Active Substance: METOPROLOL

REACTIONS (2)
  - Metastatic uterine cancer [Unknown]
  - Blood glucose increased [Unknown]
